FAERS Safety Report 12342270 (Version 2)
Quarter: 2016Q2

REPORT INFORMATION
  Report Type: Spontaneous
  Country: US (occurrence: US)
  Receive Date: 20160506
  Receipt Date: 20160622
  Transmission Date: 20160815
  Serious: No
  Sender: FDA-Public Use
  Company Number: US-009507513-1604USA017694

PATIENT
  Age: 94 Year
  Sex: Female

DRUGS (1)
  1. REMERON [Suspect]
     Active Substance: MIRTAZAPINE
     Indication: PSYCHOTHERAPY
     Route: 048

REACTIONS (2)
  - Drug tolerance decreased [Unknown]
  - Drug ineffective [Unknown]
